FAERS Safety Report 6198758-7 (Version None)
Quarter: 2009Q2

REPORT INFORMATION
  Report Type: 
  Country: None (occurrence: None)
  Receive Date: 20090521
  Receipt Date: 20090514
  Transmission Date: 20091009
  Serious: Yes (Hospitalization)
  Sender: FDA-Public Use
  Company Number: US-GENENTECH-281661

PATIENT
  Sex: Female
  Weight: 53.968 kg

DRUGS (3)
  1. BEVACIZUMAB [Suspect]
     Indication: NON-SMALL CELL LUNG CANCER
     Dosage: 10 MG/KG, DAYS 1+15
     Dates: start: 20081203, end: 20090414
  2. PEMETREXED [Suspect]
     Indication: NON-SMALL CELL LUNG CANCER
     Dosage: 500 MG/M2, DAYS 1+15
     Dates: start: 20081203, end: 20090414
  3. GEMCITABINE [Suspect]
     Indication: NON-SMALL CELL LUNG CANCER
     Dosage: 1500 MG/M2, DAYS 1+15
     Dates: start: 20081203, end: 20090414

REACTIONS (3)
  - GASTRITIS [None]
  - PANCYTOPENIA [None]
  - URINARY TRACT INFECTION [None]
